FAERS Safety Report 7271846-X (Version None)
Quarter: 2011Q1

REPORT INFORMATION
  Report Type: 
  Country: None (occurrence: None)
  Receive Date: 20110127
  Receipt Date: 20110113
  Transmission Date: 20110831
  Serious: Yes (Life-Threatening, Hospitalization)
  Sender: FDA-Public Use
  Company Number: 807299

PATIENT
  Age: 16 Year
  Sex: Male
  Weight: 30.2 kg

DRUGS (6)
  1. VALPROATE SODIUM [Concomitant]
  2. BACLOFEN [Concomitant]
  3. GAVISCON [Concomitant]
  4. LACTULOSE [Concomitant]
  5. (PAMIDRONIC ACID) [Suspect]
     Indication: OSTEOPOROSIS
     Dosage: 60 MG MILLIGRAM(S), UNKNOWN, INTRAVENOUS
     Route: 042
     Dates: start: 20101012, end: 20101012
  6. (DOMPERIDONE) [Concomitant]

REACTIONS (2)
  - HAEMATEMESIS [None]
  - HAEMOGLOBIN DECREASED [None]
